FAERS Safety Report 15534686 (Version 1)
Quarter: 2018Q4

REPORT INFORMATION
  Report Type: Spontaneous
  Country: US (occurrence: US)
  Receive Date: 20181022
  Receipt Date: 20181022
  Transmission Date: 20190205
  Serious: Yes (Hospitalization)
  Sender: FDA-Public Use
  Company Number: US-ALVOGEN-2018-ALVOGEN-097640

PATIENT
  Age: 55 Year
  Sex: Female

DRUGS (2)
  1. MINOCYCLINE [Suspect]
     Active Substance: MINOCYCLINE\MINOCYCLINE HYDROCHLORIDE
     Indication: WOUND INFECTION
     Route: 048
  2. MEROPENEM. [Suspect]
     Active Substance: MEROPENEM
     Indication: WOUND INFECTION
     Route: 042

REACTIONS (3)
  - Nausea [Unknown]
  - Dysgeusia [Unknown]
  - Trichoglossia [Recovered/Resolved]
